FAERS Safety Report 4448426-4 (Version None)
Quarter: 2004Q3

REPORT INFORMATION
  Report Type: 
  Country: None (occurrence: None)
  Receive Date: 20040914
  Receipt Date: 20040817
  Transmission Date: 20050211
  Serious: Yes (Disabling)
  Sender: FDA-Public Use
  Company Number: US-MERCK-0408USA01452

PATIENT
  Age: 67 Year
  Sex: Female
  Weight: 68 kg

DRUGS (10)
  1. VICODIN [Concomitant]
     Route: 065
  2. CARDIZEM [Concomitant]
     Route: 065
  3. NEXIUM [Concomitant]
     Route: 065
  4. PREMPRO [Concomitant]
     Route: 065
  5. SYNTHROID [Concomitant]
     Route: 065
  6. AXID [Concomitant]
     Route: 065
  7. ZOLOFT [Suspect]
     Route: 065
     Dates: end: 20040801
  8. ZOCOR [Suspect]
     Indication: BLOOD CHOLESTEROL INCREASED
     Route: 048
     Dates: start: 20040729
  9. ZOCOR [Suspect]
     Route: 048
  10. ZOCOR [Suspect]
     Route: 048
     Dates: end: 20040728

REACTIONS (3)
  - ABDOMINAL PAIN UPPER [None]
  - FEELING ABNORMAL [None]
  - VIRAL INFECTION [None]
